FAERS Safety Report 11089178 (Version 1)
Quarter: 2015Q2

REPORT INFORMATION
  Report Type: Spontaneous
  Country: TW (occurrence: TW)
  Receive Date: 20150505
  Receipt Date: 20150505
  Transmission Date: 20150821
  Serious: Yes (Hospitalization, Other)
  Sender: FDA-Public Use
  Company Number: TW-AMGEN-TWNSP2015042585

PATIENT
  Age: 68 Year
  Sex: Female

DRUGS (2)
  1. ENBREL [Suspect]
     Active Substance: ETANERCEPT
     Indication: RHEUMATOID ARTHRITIS
     Dosage: 25 MG, BIW
     Route: 058
     Dates: start: 201312
  2. ENBREL [Suspect]
     Active Substance: ETANERCEPT
     Dosage: 25 MG, Q5D
     Route: 058
     Dates: start: 201503

REACTIONS (3)
  - Oropharyngeal pain [Unknown]
  - Thyroid cancer [Recovering/Resolving]
  - Cough [Unknown]

NARRATIVE: CASE EVENT DATE: 2015
